FAERS Safety Report 5124041-4 (Version None)
Quarter: 2006Q4

REPORT INFORMATION
  Report Type: 
  Country: None (occurrence: None)
  Receive Date: 20061010
  Receipt Date: 20050630
  Transmission Date: 20070319
  Serious: No
  Sender: FDA-Public Use
  Company Number: US-BRISTOL-MYERS SQUIBB COMPANY-13021233

PATIENT
  Age: 68 Year
  Sex: Female
  Weight: 73 kg

DRUGS (3)
  1. AVAPRO [Suspect]
     Indication: HYPERTENSION
     Dates: start: 20020501
  2. TOPROL-XL [Concomitant]
  3. NEXIUM [Concomitant]

REACTIONS (4)
  - DYSPEPSIA [None]
  - LIBIDO DECREASED [None]
  - PRURITUS [None]
  - VULVOVAGINAL DRYNESS [None]
